FAERS Safety Report 25987768 (Version 1)
Quarter: 2025Q4

REPORT INFORMATION
  Report Type: Spontaneous
  Country: EU (occurrence: EU)
  Receive Date: 20251103
  Receipt Date: 20251103
  Transmission Date: 20260119
  Serious: Yes (Hospitalization, Other)
  Sender: ALEXION PHARMACEUTICALS
  Company Number: EU-ASTRAZENECA-202510EEA025830NO

PATIENT
  Sex: Male

DRUGS (1)
  1. TAGRISSO [Suspect]
     Active Substance: OSIMERTINIB
     Route: 065

REACTIONS (6)
  - Dyspnoea [Unknown]
  - Metastases to lung [Unknown]
  - Pyrexia [Unknown]
  - Dyspnoea [Unknown]
  - Headache [Unknown]
  - Pneumonitis [Unknown]
